FAERS Safety Report 6602279-4 (Version None)
Quarter: 2010Q1

REPORT INFORMATION
  Report Type: 
  Country: None (occurrence: None)
  Receive Date: 20100225
  Receipt Date: 20100216
  Transmission Date: 20100710
  Serious: Yes (Hospitalization)
  Sender: FDA-Public Use
  Company Number: JP-SANOFI-AVENTIS-2010SA010386

PATIENT
  Sex: Female

DRUGS (5)
  1. OXALIPLATIN [Suspect]
     Indication: COLON CANCER
     Route: 041
     Dates: start: 20100208, end: 20100208
  2. CALCIUM LEVOFOLINATE [Concomitant]
     Indication: COLON CANCER
     Route: 041
     Dates: start: 20100208, end: 20100209
  3. 5-FU [Concomitant]
     Indication: COLON CANCER
     Route: 040
     Dates: start: 20100208, end: 20100208
  4. 5-FU [Concomitant]
     Route: 041
     Dates: start: 20100208, end: 20100209
  5. AVASTIN [Concomitant]
     Indication: COLON CANCER
     Route: 041
     Dates: start: 20100208, end: 20100208

REACTIONS (3)
  - GENERALISED ERYTHEMA [None]
  - TOOTHACHE [None]
  - VOMITING [None]
